FAERS Safety Report 6270446-8 (Version None)
Quarter: 2009Q3

REPORT INFORMATION
  Report Type: 
  Country: None (occurrence: None)
  Receive Date: 20090716
  Receipt Date: 20090707
  Transmission Date: 20100115
  Serious: Yes (Other)
  Sender: FDA-Public Use
  Company Number: PHHY2009JP14655

PATIENT
  Sex: Female

DRUGS (4)
  1. AMN107 AMN+CAP [Suspect]
     Indication: CHRONIC MYELOID LEUKAEMIA
     Dosage: 800 MG DAILY
     Route: 048
     Dates: start: 20090407, end: 20090409
  2. LASIX [Concomitant]
     Dosage: 25 MG, UNK
     Route: 048
     Dates: start: 20080829
  3. ALDACTONE [Concomitant]
     Dosage: 25 MG, UNK
     Route: 048
     Dates: start: 20080829
  4. LIVACT [Concomitant]
     Dosage: 12.45 MG, UNK
     Dates: start: 20090203

REACTIONS (4)
  - HYPERBILIRUBINAEMIA [None]
  - HYPERKALAEMIA [None]
  - NAUSEA [None]
  - RENAL DISORDER [None]
